FAERS Safety Report 7901632-6 (Version None)
Quarter: 2011Q4

REPORT INFORMATION
  Report Type: 
  Country: None (occurrence: None)
  Receive Date: 20111104
  Receipt Date: 20111025
  Transmission Date: 20120403
  Serious: Yes (Other)
  Sender: FDA-Public Use
  Company Number: 2011AP001504

PATIENT
  Age: 61 Year
  Sex: Female

DRUGS (13)
  1. DILTIAZEM [Suspect]
     Indication: PRODUCT USED FOR UNKNOWN INDICATION
     Dosage: 200 MG;PO;QD
     Route: 048
     Dates: start: 20101006, end: 20111104
  2. DILTIAZEM HYDROCHLORIDE [Suspect]
     Dosage: PO
     Route: 048
     Dates: start: 20101006, end: 20101104
  3. MEBEVERINE (MEBEVERINE) [Concomitant]
  4. SOTALOL HCL [Concomitant]
  5. ASPIRIN [Concomitant]
  6. INDAPAMIDE [Concomitant]
  7. RAMIPRIL [Suspect]
     Indication: BLOOD PRESSURE
     Dosage: 0.75 MG; UNKNOWN, 2.5 MG; UNKNOWN
     Dates: start: 20101118
  8. RAMIPRIL [Suspect]
     Indication: BLOOD PRESSURE
     Dosage: 0.75 MG; UNKNOWN, 2.5 MG; UNKNOWN
     Dates: start: 20101206, end: 20101216
  9. BENDROFLUMETHIAZIDE (BENDROFLUMETHIAZIDE) [Concomitant]
  10. SIMVASTATIN [Concomitant]
  11. TARAXACUM OFFICINALE (TARAXACUM OFFICINALE) [Concomitant]
  12. BISOPROLOL FUMARATE [Suspect]
     Indication: PRODUCT USED FOR UNKNOWN INDICATION
     Dates: start: 20101001, end: 20101006
  13. LOSARTAN POTASSIUM [Concomitant]

REACTIONS (9)
  - BLOOD PRESSURE INCREASED [None]
  - NAUSEA [None]
  - REACTION TO DRUG EXCIPIENTS [None]
  - DIZZINESS [None]
  - VISION BLURRED [None]
  - VISUAL IMPAIRMENT [None]
  - VERTIGO [None]
  - HYPOAESTHESIA [None]
  - DRUG INTOLERANCE [None]
